FAERS Safety Report 5942406-5 (Version None)
Quarter: 2008Q4

REPORT INFORMATION
  Report Type: 
  Country: None (occurrence: None)
  Receive Date: 20081105
  Receipt Date: 20081029
  Transmission Date: 20090506
  Serious: Yes (Other)
  Sender: FDA-Public Use
  Company Number: US-PFIZER INC-2008053529

PATIENT
  Sex: Male
  Weight: 81.6 kg

DRUGS (2)
  1. CHANTIX [Suspect]
     Indication: SMOKING CESSATION THERAPY
     Route: 048
     Dates: start: 20080114, end: 20080324
  2. ALCOHOL [Suspect]

REACTIONS (8)
  - AGEUSIA [None]
  - ALCOHOL INTOLERANCE [None]
  - EUPHORIC MOOD [None]
  - MUSCULOSKELETAL PAIN [None]
  - MYALGIA [None]
  - MYOFASCIAL PAIN SYNDROME [None]
  - NECK PAIN [None]
  - PAIN [None]
